FAERS Safety Report 23631137 (Version 3)
Quarter: 2024Q1

REPORT INFORMATION
  Report Type: Spontaneous
  Country: BR (occurrence: BR)
  Receive Date: 20240314
  Receipt Date: 20240327
  Transmission Date: 20240409
  Serious: Yes (Death, Hospitalization, Other)
  Sender: FDA-Public Use
  Company Number: BR-DSJP-DSE-2024-111311

PATIENT
  Age: 60 Year
  Sex: Male

DRUGS (6)
  1. ENHERTU [Suspect]
     Active Substance: FAM-TRASTUZUMAB DERUXTECAN-NXKI
     Indication: Gastrointestinal disorder
     Dosage: 6.4 MG PER KG
     Route: 065
     Dates: start: 202303, end: 202310
  2. ENHERTU [Suspect]
     Active Substance: FAM-TRASTUZUMAB DERUXTECAN-NXKI
     Dosage: 6.4 MG PER KG
     Route: 065
  3. ENHERTU [Suspect]
     Active Substance: FAM-TRASTUZUMAB DERUXTECAN-NXKI
     Dosage: 6.4 MG PER KG
     Route: 065
  4. LEUCOVORIN CALCIUM [Suspect]
     Active Substance: LEUCOVORIN CALCIUM
     Indication: Gastrointestinal disorder
     Dosage: UNK
     Route: 065
     Dates: start: 202303, end: 202310
  5. FLUOROURACIL [Suspect]
     Active Substance: FLUOROURACIL
     Indication: Gastrointestinal disorder
     Dosage: UNK
     Dates: start: 202303, end: 202310
  6. OXALIPLATIN [Suspect]
     Active Substance: OXALIPLATIN
     Indication: Gastrointestinal disorder
     Dosage: UNK
     Route: 065
     Dates: start: 202303, end: 202310

REACTIONS (6)
  - Pancytopenia [Fatal]
  - Pyrexia [Unknown]
  - Cardiac arrest [Unknown]
  - Jaundice [Unknown]
  - Asthenia [Unknown]
  - Diarrhoea [Unknown]
